FAERS Safety Report 18391679 (Version 2)
Quarter: 2020Q4

REPORT INFORMATION
  Report Type: Report from Study
  Country: US (occurrence: US)
  Receive Date: 20201016
  Receipt Date: 20201027
  Transmission Date: 20210114
  Serious: No
  Sender: FDA-Public Use
  Company Number: NVSC2020US276854

PATIENT
  Sex: Male

DRUGS (1)
  1. ENTRESTO [Suspect]
     Active Substance: SACUBITRIL\VALSARTAN
     Indication: PRODUCT USED FOR UNKNOWN INDICATION
     Dosage: 50 MG, BID (ONE AND ONE-HALF TABLETS TWICE DAILY)
     Route: 048
     Dates: start: 20200915

REACTIONS (7)
  - Insomnia [Unknown]
  - Product dose omission issue [Unknown]
  - Cardiac disorder [Unknown]
  - Hypotension [Unknown]
  - Wrong technique in product usage process [Not Recovered/Not Resolved]
  - Malaise [Unknown]
  - Feeling abnormal [Unknown]
